FAERS Safety Report 5036880-9 (Version None)
Quarter: 2006Q2

REPORT INFORMATION
  Report Type: 
  Country: None (occurrence: None)
  Receive Date: 20060622
  Receipt Date: 20060612
  Transmission Date: 20061013
  Serious: Yes (Hospitalization)
  Sender: FDA-Public Use
  Company Number: 2006VX000542

PATIENT
  Age: 50 Year
  Sex: Female

DRUGS (11)
  1. INTEFERON ALFACON-1 [Suspect]
     Indication: HEPATITIS C
     Dosage: 15 UG; QD; SC
     Route: 058
     Dates: start: 20060215, end: 20060522
  2. RIBAVIRIN [Concomitant]
  3. SEROQUEL [Concomitant]
  4. TRAZODONE HCL [Concomitant]
  5. TRILEPTAL [Concomitant]
  6. GLYBURIDE [Concomitant]
  7. NEXIUM [Concomitant]
  8. HYDROXYZINE [Concomitant]
  9. ALTACE [Concomitant]
  10. ARIPIPRAZOLE [Concomitant]
  11. EFFEXOR [Concomitant]

REACTIONS (9)
  - ABDOMINAL PAIN [None]
  - ADNEXA UTERI MASS [None]
  - DIARRHOEA [None]
  - FATIGUE [None]
  - GASTRIC DISORDER [None]
  - HAEMOGLOBIN DECREASED [None]
  - HYPOKALAEMIA [None]
  - NAUSEA [None]
  - VOMITING [None]
